FAERS Safety Report 25133631 (Version 5)
Quarter: 2025Q4

REPORT INFORMATION
  Report Type: Report from Study
  Country: US (occurrence: US)
  Receive Date: 20250328
  Receipt Date: 20251009
  Transmission Date: 20260118
  Serious: Yes (Other)
  Sender: STEMLINE THERAPEUTICS
  Company Number: US-STEMLINE THERAPEUTICS B.V.-2025-STML-US000699

PATIENT

DRUGS (3)
  1. ORSERDU [Suspect]
     Active Substance: ELACESTRANT
     Indication: Breast cancer female
     Dosage: UNK, DAILY
     Route: 065
     Dates: start: 20250210
  2. ORSERDU [Suspect]
     Active Substance: ELACESTRANT
     Dosage: 345 MG, DAILY
     Route: 048
     Dates: start: 20250322, end: 20250721
  3. ORSERDU [Suspect]
     Active Substance: ELACESTRANT
     Dosage: UNK, (MG) DAILY
     Route: 065
     Dates: start: 2025

REACTIONS (9)
  - Renal impairment [Not Recovered/Not Resolved]
  - COVID-19 [Recovered/Resolved]
  - Retching [Unknown]
  - Productive cough [Unknown]
  - Dehydration [Not Recovered/Not Resolved]
  - Fatigue [Unknown]
  - Nausea [Recovering/Resolving]
  - Diarrhoea [Unknown]
  - Decreased appetite [Unknown]

NARRATIVE: CASE EVENT DATE: 20250201
